FAERS Safety Report 6711585-4 (Version None)
Quarter: 2010Q2

REPORT INFORMATION
  Report Type: 
  Country: None (occurrence: None)
  Receive Date: 20100505
  Receipt Date: 20100423
  Transmission Date: 20101027
  Serious: Yes (Other)
  Sender: FDA-Public Use
  Company Number: PHHY2010US17853

PATIENT
  Age: 23 Year
  Sex: Male

DRUGS (5)
  1. FANAPT [Suspect]
     Indication: SCHIZOPHRENIA
     Dosage: 1 MG, BID
     Route: 048
     Dates: start: 20100222
  2. FANAPT [Suspect]
     Dosage: 2 MG, BID
     Route: 048
  3. FANAPT [Suspect]
     Dosage: 4 MG, BID
     Route: 048
  4. HALDOL [Concomitant]
     Indication: SCHIZOPHRENIA
     Dosage: 200 MG, QW4
     Route: 030
     Dates: start: 20090101, end: 20100319
  5. SEROQUEL XR [Concomitant]
     Indication: PSYCHIATRIC SYMPTOM
     Dosage: 200 MG, QHS
     Route: 048
     Dates: start: 20090101, end: 20100301

REACTIONS (5)
  - CHEST DISCOMFORT [None]
  - DIARRHOEA [None]
  - NAUSEA [None]
  - TACHYCARDIA [None]
  - VOMITING [None]
